FAERS Safety Report 23530735 (Version 1)
Quarter: 2024Q1

REPORT INFORMATION
  Report Type: Spontaneous
  Country: FR (occurrence: FR)
  Receive Date: 20240216
  Receipt Date: 20240216
  Transmission Date: 20240410
  Serious: Yes (Hospitalization)
  Sender: FDA-Public Use
  Company Number: None

PATIENT
  Age: 38 Year
  Sex: Male

DRUGS (5)
  1. QUETIAPINE [Suspect]
     Active Substance: QUETIAPINE
     Indication: Product used for unknown indication
  2. BENZODIAZEPINE [Suspect]
     Active Substance: BENZODIAZEPINE
     Indication: Product used for unknown indication
  3. COCAINE [Suspect]
     Active Substance: COCAINE
     Indication: Product used for unknown indication
  4. CANNABIS SATIVA SUBSP. INDICA TOP [Suspect]
     Active Substance: CANNABIS SATIVA SUBSP. INDICA TOP
     Indication: Product used for unknown indication
  5. LYRICA [Suspect]
     Active Substance: PREGABALIN
     Indication: Product used for unknown indication

REACTIONS (7)
  - Drug abuse [Not Recovered/Not Resolved]
  - Behaviour disorder [Recovered/Resolved]
  - Persecutory delusion [Recovered/Resolved]
  - Pneumonia aspiration [Recovering/Resolving]
  - Poisoning [Recovered/Resolved]
  - Pulmonary embolism [Recovering/Resolving]
  - Coma [Recovered/Resolved]

NARRATIVE: CASE EVENT DATE: 20220601
